FAERS Safety Report 19498081 (Version 1)
Quarter: 2021Q3

REPORT INFORMATION
  Report Type: Spontaneous
  Country: US (occurrence: US)
  Receive Date: 20210706
  Receipt Date: 20210706
  Transmission Date: 20211014
  Serious: Yes (Other)
  Sender: FDA-Public Use
  Company Number: US-PFIZER INC-2021777310

PATIENT
  Age: 35 Year
  Sex: Female

DRUGS (1)
  1. VORICONAZOLE. [Suspect]
     Active Substance: VORICONAZOLE
     Dosage: 200 MG, 2X/DAY (Q 12 HOURS)
     Dates: start: 20190515, end: 202010

REACTIONS (2)
  - Aspergillus infection [Unknown]
  - Xanthopsia [Unknown]
